FAERS Safety Report 8381831-2 (Version None)
Quarter: 2012Q2

REPORT INFORMATION
  Report Type: 
  Country: None (occurrence: None)
  Receive Date: 20120522
  Receipt Date: 20120522
  Transmission Date: 20120825
  Serious: Yes (Life-Threatening, Hospitalization)
  Sender: FDA-Public Use
  Company Number: None

PATIENT
  Age: 45 Year
  Sex: Female
  Weight: 76.2043 kg

DRUGS (3)
  1. TAMOXIFEN CITRATE [Suspect]
     Indication: BREAST CANCER
     Dosage: 1 TABLET ONE PER DAY PO
     Route: 048
     Dates: start: 20120221, end: 20120414
  2. WARFARIN SODIUM [Concomitant]
  3. COUMADIN [Concomitant]

REACTIONS (1)
  - PULMONARY EMBOLISM [None]
